FAERS Safety Report 6303051-5 (Version None)
Quarter: 2009Q3

REPORT INFORMATION
  Report Type: 
  Country: None (occurrence: None)
  Receive Date: 20090810
  Receipt Date: 20090730
  Transmission Date: 20100115
  Serious: No
  Sender: FDA-Public Use
  Company Number: US-BAYER-200928751NA

PATIENT
  Sex: Female

DRUGS (1)
  1. MAGNEVIST [Suspect]
     Indication: ANGIOGRAM
     Dosage: TOTAL DAILY DOSE: 20 ML  UNIT DOSE: 20 ML
     Dates: start: 20090714, end: 20090714

REACTIONS (3)
  - COUGH [None]
  - THROAT TIGHTNESS [None]
  - VOMITING [None]
